FAERS Safety Report 8341704-8 (Version None)
Quarter: 2012Q2

REPORT INFORMATION
  Report Type: 
  Country: None (occurrence: None)
  Receive Date: 20120507
  Receipt Date: 20120501
  Transmission Date: 20120825
  Serious: Yes (Hospitalization)
  Sender: FDA-Public Use
  Company Number: US-PFIZER INC-2012107932

PATIENT
  Sex: Female

DRUGS (3)
  1. TRAMADOL HCL [Suspect]
     Dosage: UNK
  2. FORTEO [Suspect]
     Dosage: 20 UG, 1X/DAY
     Route: 058
     Dates: start: 20100401
  3. LIPITOR [Suspect]
     Dosage: UNK

REACTIONS (6)
  - OVERDOSE [None]
  - HYPOPHAGIA [None]
  - FEELING ABNORMAL [None]
  - ABNORMAL BEHAVIOUR [None]
  - NERVOUS SYSTEM DISORDER [None]
  - BACK PAIN [None]
